FAERS Safety Report 6028509-8 (Version None)
Quarter: 2009Q1

REPORT INFORMATION
  Report Type: 
  Country: None (occurrence: None)
  Receive Date: 20090106
  Receipt Date: 20081229
  Transmission Date: 20090719
  Serious: Yes (Hospitalization)
  Sender: FDA-Public Use
  Company Number: US-ELI_LILLY_AND_COMPANY-US200812005954

PATIENT
  Sex: Male

DRUGS (4)
  1. HUMALOG [Suspect]
  2. LANTUS [Concomitant]
  3. KLONOPIN [Concomitant]
     Indication: ANXIETY
  4. OXYGEN [Concomitant]

REACTIONS (5)
  - CATARACT [None]
  - KNEE OPERATION [None]
  - PULMONARY THROMBOSIS [None]
  - VISION BLURRED [None]
  - VISUAL ACUITY REDUCED [None]
